FAERS Safety Report 15477787 (Version 1)
Quarter: 2018Q4

REPORT INFORMATION
  Report Type: Spontaneous
  Country: FR (occurrence: FR)
  Receive Date: 20181009
  Receipt Date: 20181009
  Transmission Date: 20190205
  Serious: Yes (Hospitalization)
  Sender: FDA-Public Use
  Company Number: FR-ROCHE-2195611

PATIENT
  Age: 59 Year
  Sex: Male

DRUGS (1)
  1. ESBRIET [Suspect]
     Active Substance: PIRFENIDONE
     Indication: IDIOPATHIC PULMONARY FIBROSIS
     Route: 048
     Dates: start: 201806, end: 20180724

REACTIONS (2)
  - Dyspnoea [Recovering/Resolving]
  - Idiopathic pulmonary fibrosis [Recovering/Resolving]

NARRATIVE: CASE EVENT DATE: 20180724
